FAERS Safety Report 23874197 (Version 2)
Quarter: 2024Q3

REPORT INFORMATION
  Report Type: Spontaneous
  Country: US (occurrence: US)
  Receive Date: 20240520
  Receipt Date: 20240807
  Transmission Date: 20241017
  Serious: No
  Sender: GILEAD
  Company Number: US-GILEAD-2024-0673437

PATIENT
  Age: 56 Year
  Sex: Male

DRUGS (2)
  1. COMPLERA [Suspect]
     Active Substance: EMTRICITABINE\RILPIVIRINE HYDROCHLORIDE\TENOFOVIR DISOPROXIL FUMARATE
     Indication: HIV infection
     Dosage: UNK
     Route: 048
     Dates: start: 20130101, end: 20181231
  2. ODEFSEY [Concomitant]
     Active Substance: EMTRICITABINE\RILPIVIRINE HYDROCHLORIDE\TENOFOVIR ALAFENAMIDE FUMARATE

REACTIONS (4)
  - Bone density decreased [Unknown]
  - Tooth loss [Unknown]
  - Bone loss [Not Recovered/Not Resolved]
  - Fracture [Not Recovered/Not Resolved]

NARRATIVE: CASE EVENT DATE: 20190112
